FAERS Safety Report 10077043 (Version 1)
Quarter: 2014Q2

REPORT INFORMATION
  Report Type: Spontaneous
  Country: US (occurrence: None)
  Receive Date: 20140410
  Receipt Date: 20140410
  Transmission Date: 20141212
  Serious: Yes (Life-Threatening)
  Sender: FDA-Public Use
  Company Number: SYM-2014-19587

PATIENT
  Age: 56 Year
  Sex: Female

DRUGS (22)
  1. FLAGYL [Suspect]
     Indication: PRODUCT USED FOR UNKNOWN INDICATION
     Route: 048
     Dates: start: 20140119, end: 20140120
  2. CLOPIDOGREL [Suspect]
     Indication: PRODUCT USED FOR UNKNOWN INDICATION
     Route: 048
     Dates: end: 20140120
  3. PIPERACILLIN/TAZOBACTAM (PIP/TAZO) (PIPERACILLIN SODIUM, TAZOBACTAM  SODIUM) [Suspect]
     Indication: PRODUCT USED FOR UNKNOWN INDICATION
     Route: 042
     Dates: start: 20140116, end: 20140126
  4. VANCOMYCIN [Suspect]
     Indication: PRODUCT USED FOR UNKNOWN INDICATION
     Route: 042
     Dates: start: 20140118, end: 20140125
  5. LOVENOX [Suspect]
     Indication: PRODUCT USED FOR UNKNOWN INDICATION
     Dates: start: 20140118
  6. TAMIFLU [Suspect]
     Route: 048
     Dates: start: 20140114, end: 20140119
  7. CRESTOR [Concomitant]
  8. VERAPAMIL [Concomitant]
  9. IKOREL [Concomitant]
  10. ALDACTAZINE [Concomitant]
  11. COVERSYL [Concomitant]
  12. PLAVIX (CLOPIDOGREL BISULFATE) (CLOPIDOGREL BISULFATE) [Concomitant]
  13. AMLOR [Concomitant]
  14. EUPANTOL [Concomitant]
  15. ALPRAZOLAM [Concomitant]
  16. SEROPLEX [Concomitant]
  17. ATARAX(HYDROYYZINE) (HYDROXYZINE) [Concomitant]
  18. CEFTRIAXONE [Concomitant]
  19. ROVAMYCINE [Concomitant]
  20. CALCIPARINE [Concomitant]
  21. TERBUTALINE [Concomitant]
  22. COMBIVENT [Concomitant]

REACTIONS (3)
  - Retroperitoneal haematoma [None]
  - Abdominal wall haematoma [None]
  - Haemorrhagic anaemia [None]
